FAERS Safety Report 9743179 (Version 2)
Quarter: 2015Q3

REPORT INFORMATION
  Report Type: Spontaneous
  Country: US (occurrence: US)
  Receive Date: 20131210
  Receipt Date: 20150804
  Transmission Date: 20151125
  Serious: No
  Sender: FDA-Public Use
  Company Number: US-GILEAD-2009-0024887

PATIENT
  Age: 26 Year
  Sex: Female

DRUGS (18)
  1. LETAIRIS [Suspect]
     Active Substance: AMBRISENTAN
     Indication: PULMONARY ARTERIAL HYPERTENSION
     Route: 048
     Dates: start: 20080922
  2. VIAGRA [Concomitant]
     Active Substance: SILDENAFIL CITRATE
  3. ACETAMINOPHEN AND CODEINE [Concomitant]
     Active Substance: ACETAMINOPHEN\CODEINE PHOSPHATE
  4. CLONAZEPAM. [Concomitant]
     Active Substance: CLONAZEPAM
  5. DARVOCET A500 [Concomitant]
     Active Substance: ACETAMINOPHEN\PROPOXYPHENE NAPSYLATE
  6. LANOXIN [Concomitant]
     Active Substance: DIGOXIN
  7. ALDACTONE [Concomitant]
     Active Substance: SPIRONOLACTONE
  8. PREDNISONE. [Concomitant]
     Active Substance: PREDNISONE
  9. SOMA [Concomitant]
     Active Substance: CARISOPRODOL
  10. DANAZOL. [Concomitant]
     Active Substance: DANAZOL
  11. FLOLAN [Concomitant]
     Active Substance: EPOPROSTENOL SODIUM
  12. FUROSEMIDE. [Concomitant]
     Active Substance: FUROSEMIDE
  13. AZATHIOPRINE. [Concomitant]
     Active Substance: AZATHIOPRINE
  14. AMBIEN [Concomitant]
     Active Substance: ZOLPIDEM TARTRATE
  15. PLAQUENIL [Concomitant]
     Active Substance: HYDROXYCHLOROQUINE SULFATE
  16. PARACETAMOL/TRAMADOL HYDROCHLORIDE [Concomitant]
  17. EFFEXOR [Concomitant]
     Active Substance: VENLAFAXINE HYDROCHLORIDE
  18. HYDROXYCHLOROQUINE [Concomitant]
     Active Substance: HYDROXYCHLOROQUINE

REACTIONS (1)
  - Contusion [Not Recovered/Not Resolved]
